FAERS Safety Report 18727961 (Version 4)
Quarter: 2021Q1

REPORT INFORMATION
  Report Type: Spontaneous
  Country: JP (occurrence: JP)
  Receive Date: 20210111
  Receipt Date: 20210313
  Transmission Date: 20210419
  Serious: Yes (Hospitalization, Other)
  Sender: FDA-Public Use
  Company Number: JP-BRISTOL-MYERS SQUIBB COMPANY-BMS-2021-001388

PATIENT
  Age: 60 Year
  Sex: Female
  Weight: 52.5 kg

DRUGS (6)
  1. GENINAX [Suspect]
     Active Substance: GARENOXACIN MESYLATE
     Indication: INTERSTITIAL LUNG DISEASE
     Dosage: 400 MILLIGRAM, 14 DAYS
     Route: 048
     Dates: start: 20201225, end: 20210107
  2. YERVOY [Suspect]
     Active Substance: IPILIMUMAB
     Indication: METASTATIC RENAL CELL CARCINOMA
     Dosage: 46 MILLIGRAM, ONE TIME DOSE
     Route: 041
     Dates: start: 20200619, end: 20200619
  3. OPDIVO [Suspect]
     Active Substance: NIVOLUMAB
     Indication: METASTATIC RENAL CELL CARCINOMA
     Dosage: 240 MILLIGRAM, 13 TIMES
     Route: 041
     Dates: start: 20200619, end: 20210101
  4. YERVOY [Suspect]
     Active Substance: IPILIMUMAB
     Dosage: 46 MILLIGRAM, ONE TIME DOSE
     Route: 041
     Dates: start: 20200710, end: 20200710
  5. YERVOY [Suspect]
     Active Substance: IPILIMUMAB
     Dosage: 46 MILLIGRAM, ONE TIME DOSE
     Route: 041
     Dates: start: 20200731, end: 20200731
  6. YERVOY [Suspect]
     Active Substance: IPILIMUMAB
     Dosage: 46 MILLIGRAM, ONE TIME DOSE
     Route: 041
     Dates: start: 20200821, end: 20200821

REACTIONS (6)
  - Hepatic function abnormal [Recovered/Resolved]
  - Interstitial lung disease [Recovering/Resolving]
  - Renal impairment [Recovered/Resolved]
  - Decreased appetite [Recovered/Resolved]
  - Rash [Recovered/Resolved]
  - Pyrexia [Recovered/Resolved]

NARRATIVE: CASE EVENT DATE: 20201225
